FAERS Safety Report 24614247 (Version 1)
Quarter: 2024Q4

REPORT INFORMATION
  Report Type: Spontaneous
  Country: US (occurrence: US)
  Receive Date: 20241113
  Receipt Date: 20241113
  Transmission Date: 20250115
  Serious: No
  Sender: PAREXEL
  Company Number: US-STEMLINE THERAPEUTICS, INC-2024-STML-US005091

PATIENT

DRUGS (2)
  1. ORSERDU [Suspect]
     Active Substance: ELACESTRANT
     Indication: Product used for unknown indication
     Dosage: 345 MG, DAILY
     Route: 065
     Dates: start: 20240716
  2. ORSERDU [Suspect]
     Active Substance: ELACESTRANT
     Dosage: 258 MG
     Route: 065

REACTIONS (2)
  - Nausea [Unknown]
  - Abdominal pain [Unknown]
